FAERS Safety Report 11880905 (Version 1)
Quarter: 2015Q4

REPORT INFORMATION
  Report Type: Spontaneous
  Country: GB (occurrence: GB)
  Receive Date: 20151230
  Receipt Date: 20151230
  Transmission Date: 20160305
  Serious: Yes (Life-Threatening, Hospitalization, Other)
  Sender: FDA-Public Use
  Company Number: GB-GILEAD-2015-0190353

PATIENT
  Age: 77 Year
  Sex: Male

DRUGS (12)
  1. WARFARIN [Concomitant]
     Active Substance: WARFARIN
  2. FRUSEMIDE                          /00032601/ [Concomitant]
     Active Substance: FUROSEMIDE
  3. OMEPRAZOLE. [Concomitant]
     Active Substance: OMEPRAZOLE
  4. RANOLAZINE [Suspect]
     Active Substance: RANOLAZINE
     Indication: ANGINA PECTORIS
     Dosage: 750 MG, QD
     Route: 048
     Dates: start: 201510, end: 201510
  5. GLICLAZIDE [Concomitant]
     Active Substance: GLICLAZIDE
  6. NICORANDIL [Concomitant]
     Active Substance: NICORANDIL
  7. CLOPIDOGREL [Concomitant]
     Active Substance: CLOPIDOGREL BISULFATE
  8. ISOSORBIDE MONONITRATE. [Concomitant]
     Active Substance: ISOSORBIDE MONONITRATE
  9. RAMIPRIL. [Concomitant]
     Active Substance: RAMIPRIL
  10. FELODIPINE. [Concomitant]
     Active Substance: FELODIPINE
  11. BISOPROLOL [Concomitant]
     Active Substance: BISOPROLOL
  12. ATORVASTATIN [Concomitant]
     Active Substance: ATORVASTATIN

REACTIONS (3)
  - Blood potassium increased [Unknown]
  - Acute kidney injury [Unknown]
  - Bradycardia [Unknown]

NARRATIVE: CASE EVENT DATE: 2015
